FAERS Safety Report 12548851 (Version 1)
Quarter: 2016Q3

REPORT INFORMATION
  Report Type: Spontaneous
  Country: DE (occurrence: DE)
  Receive Date: 20160712
  Receipt Date: 20160712
  Transmission Date: 20161109
  Serious: Yes (Other)
  Sender: FDA-Public Use
  Company Number: DE-AUROBINDO-AUR-APL-2016-08894

PATIENT
  Age: 59 Year
  Sex: Female
  Weight: 79 kg

DRUGS (1)
  1. LEVOFLOXACIN 500MG [Suspect]
     Active Substance: LEVOFLOXACIN
     Indication: BRONCHITIS
     Route: 065

REACTIONS (30)
  - Mental disorder [Unknown]
  - Sleep disorder [Unknown]
  - Dysgeusia [Unknown]
  - Breast pain [Unknown]
  - Nausea [Unknown]
  - Tendon pain [Unknown]
  - Dyspepsia [Unknown]
  - Pain in extremity [Unknown]
  - Fatigue [Unknown]
  - Abasia [Recovered/Resolved]
  - Weight increased [Unknown]
  - Asthenia [Unknown]
  - Headache [Unknown]
  - Alopecia [Unknown]
  - Pain of skin [Unknown]
  - Hypotonia [Unknown]
  - Tongue discomfort [Unknown]
  - Malaise [Unknown]
  - Tongue coated [Unknown]
  - Urticaria [Unknown]
  - Angina pectoris [Unknown]
  - Pain in jaw [Unknown]
  - Flatulence [Unknown]
  - Peripheral swelling [Unknown]
  - Vision blurred [Unknown]
  - Back pain [Unknown]
  - Peripheral coldness [Not Recovered/Not Resolved]
  - Muscle spasms [Unknown]
  - Constipation [Unknown]
  - Nipple pain [Unknown]

NARRATIVE: CASE EVENT DATE: 20160423
